FAERS Safety Report 5367096-4 (Version None)
Quarter: 2007Q2

REPORT INFORMATION
  Report Type: 
  Country: None (occurrence: None)
  Receive Date: 20070620
  Receipt Date: 20070620
  Transmission Date: 20071010
  Serious: Yes (Hospitalization)
  Sender: FDA-Public Use
  Company Number: None

PATIENT
  Age: 62 Year
  Sex: Male

DRUGS (6)
  1. SOTALOL HYDROCHLORIDE [Suspect]
     Indication: ATRIAL FLUTTER
     Dosage: 120MG BID PO
     Route: 048
     Dates: start: 20070507, end: 20070603
  2. SOTALOL HYDROCHLORIDE [Suspect]
     Indication: HYPERTENSION
     Dosage: 120MG BID PO
     Route: 048
     Dates: start: 20070507, end: 20070603
  3. SOTALOL HYDROCHLORIDE [Suspect]
     Indication: SUPRAVENTRICULAR TACHYCARDIA
     Dosage: 120MG BID PO
     Route: 048
     Dates: start: 20070507, end: 20070603
  4. METOPROLOL SUCCINATE [Suspect]
     Indication: ATRIAL FLUTTER
     Dosage: 150 MG EVERY DAY PO
     Route: 048
  5. METOPROLOL SUCCINATE [Suspect]
     Indication: HYPERTENSION
     Dosage: 150 MG EVERY DAY PO
     Route: 048
  6. METOPROLOL SUCCINATE [Suspect]
     Indication: SUPRAVENTRICULAR TACHYCARDIA
     Dosage: 150 MG EVERY DAY PO
     Route: 048

REACTIONS (2)
  - HYPOTENSION [None]
  - RENAL FAILURE ACUTE [None]
